FAERS Safety Report 24940781 (Version 1)
Quarter: 2025Q1

REPORT INFORMATION
  Report Type: Spontaneous
  Country: RU (occurrence: RU)
  Receive Date: 20250207
  Receipt Date: 20250207
  Transmission Date: 20250409
  Serious: Yes (Life-Threatening, Other)
  Sender: ALEXION PHARMACEUTICALS
  Company Number: RU-ASTRAZENECA-202502RUS001107RU

PATIENT
  Age: 47 Year
  Weight: 110 kg

DRUGS (7)
  1. NEXIUM [Suspect]
     Active Substance: ESOMEPRAZOLE MAGNESIUM
  2. AMOXICILLIN [Suspect]
     Active Substance: AMOXICILLIN
     Indication: Gastric ulcer
     Dosage: 500 MILLIGRAM, BID
  3. CLARITHROMYCIN [Suspect]
     Active Substance: CLARITHROMYCIN
     Indication: Gastric ulcer
     Dosage: 500 MILLIGRAM, BID
     Route: 065
  4. BISMUTH [Suspect]
     Active Substance: BISMUTH SUBSALICYLATE
     Indication: Gastric ulcer
     Dosage: 120 MILLIGRAM, BID
  5. OMEPRAZOLE [Suspect]
     Active Substance: OMEPRAZOLE
     Indication: Gastric ulcer
     Dosage: 20 MILLIGRAM, BID
     Route: 065
  6. SACCHAROMYCES CEREVISIAE [Suspect]
     Active Substance: SACCHAROMYCES CEREVISIAE
     Indication: Gastric ulcer
     Dosage: 250 MILLIGRAM, BID
  7. VENTOLIN [Concomitant]
     Active Substance: ALBUTEROL SULFATE

REACTIONS (7)
  - Dyspnoea [Unknown]
  - Urticaria [Recovering/Resolving]
  - Hypertensive crisis [Unknown]
  - Nasal congestion [Unknown]
  - Sneezing [Unknown]
  - Pruritus [Unknown]
  - Asthenia [Unknown]
